FAERS Safety Report 20546006 (Version 2)
Quarter: 2022Q1

REPORT INFORMATION
  Report Type: Spontaneous
  Country: JP (occurrence: JP)
  Receive Date: 20220303
  Receipt Date: 20220311
  Transmission Date: 20220423
  Serious: No
  Sender: FDA-Public Use
  Company Number: JP-GSKNCCC-Case-01431841_AE-55276

PATIENT
  Age: 70 Year
  Sex: Male

DRUGS (8)
  1. SOTROVIMAB [Suspect]
     Active Substance: SOTROVIMAB
     Dosage: 500 MG/100 ML/30 MIN
     Dates: start: 20220215, end: 20220215
  2. ESAXERENONE [Concomitant]
     Active Substance: ESAXERENONE
     Indication: Blood pressure management
     Dosage: 2.5 MG, 1 TABLET DAILY
     Dates: start: 2017
  3. BENIDIPINE HYDROCHLORIDE [Concomitant]
     Active Substance: BENIDIPINE HYDROCHLORIDE
     Indication: Blood pressure management
     Dosage: 4 MG, TABLET DAILY
  4. AZILVA TABLETS [Concomitant]
     Indication: Blood pressure management
     Dosage: 10 MG, 1 TABLET DAILY
  5. RESTAMIN KOWA CREAM 1% [Concomitant]
     Indication: Pruritus
     Dosage: AS NEEDED
     Dates: start: 2017
  6. RESTAMIN KOWA CREAM 1% [Concomitant]
     Indication: Rash erythematous
  7. EURAX [Concomitant]
     Active Substance: CROTAMITON
     Indication: Pruritus
     Dosage: AS NEEDED
     Dates: start: 2017
  8. EURAX [Concomitant]
     Active Substance: CROTAMITON
     Indication: Rash erythematous

REACTIONS (2)
  - Pruritus [Recovered/Resolved]
  - Rash erythematous [Recovered/Resolved]
